FAERS Safety Report 8483023-5 (Version None)
Quarter: 2012Q2

REPORT INFORMATION
  Report Type: 
  Country: None (occurrence: None)
  Receive Date: 20120626
  Receipt Date: 20120615
  Transmission Date: 20120825
  Serious: Yes (Hospitalization, Other)
  Sender: FDA-Public Use
  Company Number: DSA_56312_2012

PATIENT
  Age: 80 Year
  Sex: Female

DRUGS (8)
  1. BUDESONIDE [Concomitant]
  2. ACENOCOUMAROL (ACENOCOUMAROL) [Suspect]
     Indication: PRODUCT USED FOR UNKNOWN INDICATION
     Dosage: (DF)
  3. OMEPRAZOLE [Concomitant]
  4. TIOTROPIUM BROMIDE [Concomitant]
  5. ACETAMINOPHEN [Concomitant]
  6. METFORMIN HCL [Concomitant]
  7. FORMOTEROL FUMARATE [Concomitant]
  8. DILTIAZEM HYDROCHLORIDE [Suspect]
     Indication: PRODUCT USED FOR UNKNOWN INDICATION
     Dosage: (DF)

REACTIONS (6)
  - CALCIPHYLAXIS [None]
  - RASH ERYTHEMATOUS [None]
  - LIVEDO RETICULARIS [None]
  - PAIN [None]
  - SKIN ULCER [None]
  - ESCHAR [None]
